FAERS Safety Report 7765042-7 (Version None)
Quarter: 2011Q3

REPORT INFORMATION
  Report Type: 
  Country: None (occurrence: None)
  Receive Date: 20110921
  Receipt Date: 20110909
  Transmission Date: 20111222
  Serious: Yes (Hospitalization)
  Sender: FDA-Public Use
  Company Number: US-BAYER-2011-053827

PATIENT
  Age: 32 Year
  Sex: Female
  Weight: 91.156 kg

DRUGS (2)
  1. YASMIN [Suspect]
     Dosage: UNK
     Dates: start: 20090301, end: 20091001
  2. ADVIL LIQUI-GELS [Concomitant]
     Indication: HEADACHE
     Dosage: 50 MG, UNK
     Route: 048

REACTIONS (6)
  - CHOLELITHIASIS [None]
  - INJURY [None]
  - PAIN [None]
  - GALLBLADDER DISORDER [None]
  - CHOLECYSTITIS CHRONIC [None]
  - EMOTIONAL DISTRESS [None]
